FAERS Safety Report 8895606 (Version 3)
Quarter: 2012Q4

REPORT INFORMATION
  Report Type: 
  Country: US (occurrence: US)
  Receive Date: 20121107
  Receipt Date: 20121116
  Transmission Date: 20130627
  Serious: Yes (Other)
  Sender: FDA-Public Use
  Company Number: US-GILEAD-2012-0064230

PATIENT
  Sex: Female

DRUGS (4)
  1. LETAIRIS [Suspect]
     Indication: PULMONARY HYPERTENSION
     Dosage: 5 mg, QD
     Route: 048
     Dates: start: 20110727
  2. LETAIRIS [Suspect]
     Indication: PULMONARY ARTERIAL HYPERTENSION
  3. LETAIRIS [Suspect]
     Indication: INTERSTITIAL LUNG DISEASE
  4. REVATIO [Concomitant]

REACTIONS (8)
  - Haematochezia [Unknown]
  - Cholelithiasis [Unknown]
  - Hepatic lesion [Unknown]
  - Candidiasis [Unknown]
  - Diarrhoea [Unknown]
  - Faeces discoloured [Unknown]
  - Gastrointestinal disorder [Unknown]
  - Vomiting [Unknown]
